FAERS Safety Report 16439670 (Version 3)
Quarter: 2019Q4

REPORT INFORMATION
  Report Type: Report from Study
  Country: MX (occurrence: MX)
  Receive Date: 20190617
  Receipt Date: 20191206
  Transmission Date: 20200122
  Serious: Yes (Death, Other)
  Sender: FDA-Public Use
  Company Number: MX-BAYER-2019-103577

PATIENT
  Age: 75 Year
  Sex: Male

DRUGS (5)
  1. STIVARGA [Suspect]
     Active Substance: REGORAFENIB
     Indication: HEPATOCELLULAR CARCINOMA
     Dosage: 160 MG DAILY (EVERY 24 HOURS)
     Route: 048
     Dates: start: 20190401, end: 2019
  2. FUROSEMIDE. [Concomitant]
     Active Substance: FUROSEMIDE
     Indication: ASCITES
  3. STIVARGA [Suspect]
     Active Substance: REGORAFENIB
     Indication: HEPATIC CANCER
     Dosage: 120 MG EVERY 24 HOURS
     Route: 048
     Dates: start: 20190504, end: 2019
  4. STIVARGA [Suspect]
     Active Substance: REGORAFENIB
     Indication: HEPATOCELLULAR CARCINOMA
     Dosage: 160 MG DAILY (EVERY 24 HOURS)
     Route: 048
     Dates: end: 20190709
  5. LOSARTAN. [Concomitant]
     Active Substance: LOSARTAN
     Indication: HYPERTENSION

REACTIONS (10)
  - Hepatocellular carcinoma [Fatal]
  - Ascites [None]
  - Peripheral swelling [None]
  - Inflammation [None]
  - Metastases to liver [Fatal]
  - Diarrhoea [Not Recovered/Not Resolved]
  - Abdominal distension [Not Recovered/Not Resolved]
  - Gastritis [None]
  - Fluid retention [None]
  - Dysuria [None]

NARRATIVE: CASE EVENT DATE: 20190523
